FAERS Safety Report 7390539-1 (Version None)
Quarter: 2011Q2

REPORT INFORMATION
  Report Type: 
  Country: None (occurrence: None)
  Receive Date: 20110403
  Receipt Date: 20090928
  Transmission Date: 20111010
  Serious: Yes (Other)
  Sender: FDA-Public Use
  Company Number: PHHY2009DE67365

PATIENT

DRUGS (1)
  1. EXTAVIA [Suspect]
     Route: 058
     Dates: start: 20090606

REACTIONS (11)
  - GASTROINTESTINAL INFECTION [None]
  - ABDOMINAL DISCOMFORT [None]
  - BRONCHITIS [None]
  - COUGH [None]
  - ANXIETY [None]
  - ERYTHEMA [None]
  - INJECTION SITE ERYTHEMA [None]
  - MULTIPLE SCLEROSIS RELAPSE [None]
  - STRESS [None]
  - TINNITUS [None]
  - JAW DISORDER [None]
